FAERS Safety Report 11689007 (Version 1)
Quarter: 2015Q4

REPORT INFORMATION
  Report Type: Report from Study
  Country: US (occurrence: US)
  Receive Date: 20151102
  Receipt Date: 20151102
  Transmission Date: 20160304
  Serious: Yes (Hospitalization)
  Sender: FDA-Public Use
  Company Number: US-ABBVIE-15K-163-1488381-00

PATIENT
  Age: 49 Year
  Sex: Female

DRUGS (1)
  1. HUMIRA [Suspect]
     Active Substance: ADALIMUMAB
     Indication: PSORIASIS
     Route: 058
     Dates: start: 20150401, end: 20151020

REACTIONS (4)
  - Groin abscess [Recovering/Resolving]
  - Psoriasis [Recovering/Resolving]
  - Dry skin [Unknown]
  - Local swelling [Recovering/Resolving]

NARRATIVE: CASE EVENT DATE: 2015
